FAERS Safety Report 9233290 (Version 2)
Quarter: 2013Q2

REPORT INFORMATION
  Report Type: Spontaneous
  Country: US (occurrence: US)
  Receive Date: 20130416
  Receipt Date: 20130416
  Transmission Date: 20140414
  Serious: No
  Sender: FDA-Public Use
  Company Number: US-BANPHARM-20130898

PATIENT
  Age: 64 Year
  Sex: Male
  Weight: 85.28 kg

DRUGS (3)
  1. ALEVE LIQUID GELS 220MG [Suspect]
     Indication: PAIN
     Dosage: 1 DF, PRN,
     Route: 048
     Dates: start: 201202, end: 20120315
  2. ALEVE TABLETS [Suspect]
     Indication: PAIN
     Dosage: 1 DF, PRN,
     Route: 048
  3. VITAMINS [Concomitant]

REACTIONS (4)
  - Glossodynia [Recovered/Resolved]
  - Throat irritation [Recovered/Resolved]
  - Capsule physical issue [Unknown]
  - Product taste abnormal [Unknown]
